FAERS Safety Report 11881525 (Version 1)
Quarter: 2015Q4

REPORT INFORMATION
  Report Type: Report from Study
  Country: CA (occurrence: CA)
  Receive Date: 20151231
  Receipt Date: 20151231
  Transmission Date: 20160305
  Serious: Yes (Hospitalization)
  Sender: FDA-Public Use
  Company Number: CA-ROCHE-ITM201401IM004895

PATIENT
  Age: 57 Year
  Sex: Female
  Weight: 46 kg

DRUGS (8)
  1. ZYPREXA [Concomitant]
     Active Substance: OLANZAPINE
     Route: 065
  2. NAC (ACETYLCYSTEINE) [Concomitant]
     Route: 065
     Dates: start: 20130904
  3. DESYREL [Concomitant]
     Active Substance: TRAZODONE HYDROCHLORIDE
     Dosage: ONCE BEFORE BED
     Route: 065
     Dates: start: 20131020, end: 20131027
  4. ESBRIET [Suspect]
     Active Substance: PIRFENIDONE
     Indication: PRODUCT USED FOR UNKNOWN INDICATION
     Route: 048
     Dates: start: 20130924
  5. ESBRIET [Suspect]
     Active Substance: PIRFENIDONE
     Route: 048
  6. TOPIRAMATE. [Concomitant]
     Active Substance: TOPIRAMATE
     Dosage: ONCE BEFORE BED
     Route: 065
  7. EFFEXOR [Concomitant]
     Active Substance: VENLAFAXINE HYDROCHLORIDE
     Dosage: ONCE EACH MORNING
     Route: 065
     Dates: start: 20131027
  8. ACTONEL [Concomitant]
     Active Substance: RISEDRONATE SODIUM
     Indication: OSTEOPOROSIS PROPHYLAXIS
     Route: 065

REACTIONS (3)
  - Dyspnoea [Unknown]
  - Sputum discoloured [Unknown]
  - Influenza [Unknown]

NARRATIVE: CASE EVENT DATE: 20140115
